FAERS Safety Report 9934526 (Version 3)
Quarter: 2014Q2

REPORT INFORMATION
  Report Type: Spontaneous
  Country: IE (occurrence: IE)
  Receive Date: 20140228
  Receipt Date: 20140418
  Transmission Date: 20141212
  Serious: Yes (Hospitalization, Other)
  Sender: FDA-Public Use
  Company Number: PHFR2014IE000666

PATIENT
  Age: 71 Year
  Sex: Female

DRUGS (3)
  1. CLOZARIL [Suspect]
     Indication: SCHIZOPHRENIA
     Dosage: UNK
     Route: 048
     Dates: start: 20091029
  2. VALPROATE [Concomitant]
     Indication: SCHIZOAFFECTIVE DISORDER
     Dosage: UNK
     Route: 048
  3. GLUCOPHAGE [Concomitant]
     Indication: TYPE 2 DIABETES MELLITUS
     Dosage: UNK
     Route: 048

REACTIONS (3)
  - Ankle fracture [Recovered/Resolved]
  - Fall [Recovered/Resolved]
  - Haemoglobin decreased [Unknown]
